FAERS Safety Report 19350115 (Version 1)
Quarter: 2021Q2

REPORT INFORMATION
  Report Type: Spontaneous
  Country: CO (occurrence: CO)
  Receive Date: 20210531
  Receipt Date: 20210531
  Transmission Date: 20210717
  Serious: Yes (Other)
  Sender: FDA-Public Use
  Company Number: CO-SA-2021SA178529

PATIENT
  Age: 20 Year
  Sex: Male

DRUGS (1)
  1. DUPIXENT [Suspect]
     Active Substance: DUPILUMAB
     Route: 058
     Dates: start: 20210310

REACTIONS (6)
  - Road traffic accident [Unknown]
  - Chest injury [Unknown]
  - Visual impairment [Unknown]
  - Fall [Unknown]
  - Head injury [Unknown]
  - Lip injury [Unknown]
